FAERS Safety Report 14107671 (Version 1)
Quarter: 2017Q4

REPORT INFORMATION
  Report Type: Spontaneous
  Country: US (occurrence: US)
  Receive Date: 20171019
  Receipt Date: 20171019
  Transmission Date: 20180321
  Serious: Yes (Other)
  Sender: FDA-Public Use
  Company Number: US-SA-2017SA198638

PATIENT
  Age: 59 Year
  Sex: Female

DRUGS (2)
  1. NOVOLIN [Concomitant]
     Active Substance: INSULIN HUMAN
  2. LANTUS [Suspect]
     Active Substance: INSULIN GLARGINE
     Indication: TYPE 1 DIABETES MELLITUS
     Dosage: DOSE:4-6 UNITS
     Route: 051

REACTIONS (2)
  - Blood glucose increased [Unknown]
  - Foot operation [Unknown]

NARRATIVE: CASE EVENT DATE: 2017
